FAERS Safety Report 19059124 (Version 1)
Quarter: 2021Q1

REPORT INFORMATION
  Report Type: Report from Study
  Country: CA (occurrence: CA)
  Receive Date: 20210325
  Receipt Date: 20210325
  Transmission Date: 20210420
  Serious: Yes (Death)
  Sender: FDA-Public Use
  Company Number: PHHY2019CA208425

PATIENT
  Sex: Male

DRUGS (2)
  1. JADENU [Suspect]
     Active Substance: DEFERASIROX
     Indication: IRON OVERLOAD
     Dosage: UNK
     Route: 048
     Dates: start: 20200310
  2. JADENU [Suspect]
     Active Substance: DEFERASIROX
     Indication: MYELODYSPLASTIC SYNDROME
     Dosage: UNK
     Route: 048

REACTIONS (2)
  - Death [Fatal]
  - Drug ineffective [Unknown]
